FAERS Safety Report 19661289 (Version 2)
Quarter: 2021Q4

REPORT INFORMATION
  Report Type: Spontaneous
  Country: US (occurrence: US)
  Receive Date: 20210805
  Receipt Date: 20211005
  Transmission Date: 20220303
  Serious: Yes (Other)
  Sender: FDA-Public Use
  Company Number: US-PFIZER INC-2016510385

PATIENT
  Age: 78 Year
  Sex: Female
  Weight: 58.05 kg

DRUGS (17)
  1. LYRICA [Suspect]
     Active Substance: PREGABALIN
     Indication: Lumbosacral radiculopathy
     Dosage: 75 MG, 3X/DAY
     Route: 048
  2. LYRICA [Suspect]
     Active Substance: PREGABALIN
     Indication: Nerve injury
     Dosage: 100 MG, 2X/DAY
     Route: 048
  3. LYRICA [Suspect]
     Active Substance: PREGABALIN
     Indication: Pain
     Dosage: 100 MG, 3X/DAY
     Route: 048
  4. ALPRAZOLAM [Concomitant]
     Active Substance: ALPRAZOLAM
     Dosage: 0.25 MG, AS NEEDED (1 TABLET 2 TIMES A DAY )
     Route: 048
  5. ANASTROZOLE [Concomitant]
     Active Substance: ANASTROZOLE
     Dosage: 1 MG, DAILY
     Route: 048
  6. BACLOFEN [Concomitant]
     Active Substance: BACLOFEN
     Dosage: 10 MG, DAILY (TAKE 1 TABLET EVERY DAY)
     Route: 048
  7. CALCIUM\CHOLECALCIFEROL [Concomitant]
     Active Substance: CALCIUM\CHOLECALCIFEROL
     Dosage: 1 DF, 2X/DAY
     Route: 048
  8. VITAMIN B12 [Concomitant]
     Active Substance: CYANOCOBALAMIN
     Dosage: 1000 UG, 1X/DAY
  9. ESCITALOPRAM [Concomitant]
     Active Substance: ESCITALOPRAM OXALATE
     Dosage: 10 MG, DAILY
     Route: 048
  10. ESCITALOPRAM [Concomitant]
     Active Substance: ESCITALOPRAM OXALATE
     Dosage: 5 MG, UNK
  11. ACETAMINOPHEN\HYDROCODONE [Concomitant]
     Active Substance: ACETAMINOPHEN\HYDROCODONE
     Dosage: 1 DF, DAILY
     Route: 048
  12. LISINOPRIL [Concomitant]
     Active Substance: LISINOPRIL
     Dosage: 0.5 DF, 1X/DAY
     Route: 048
  13. MYRBETRIQ [Concomitant]
     Active Substance: MIRABEGRON
     Dosage: 50 MG, DAILY
     Route: 048
  14. PROLIA [Concomitant]
     Active Substance: DENOSUMAB
     Dosage: 60 MG/ML
     Route: 058
  15. PROMETHAZINE [Concomitant]
     Active Substance: PROMETHAZINE HYDROCHLORIDE
     Dosage: 25 MG, 1X/DAY
  16. DIETARY SUPPLEMENT [Concomitant]
     Active Substance: DIETARY SUPPLEMENT
     Dosage: 600 MG, 2X/DAY
     Route: 048
  17. RELAFEN [Concomitant]
     Active Substance: NABUMETONE
     Dosage: 500 MG, 2X/DAY
     Route: 048

REACTIONS (3)
  - Coronary artery occlusion [Unknown]
  - Memory impairment [Unknown]
  - Insomnia [Unknown]
